FAERS Safety Report 9150655 (Version 2)
Quarter: 2013Q2

REPORT INFORMATION
  Report Type: Spontaneous
  Country: US (occurrence: None)
  Receive Date: 20130219
  Receipt Date: 20130523
  Transmission Date: 20140414
  Serious: Yes (Other)
  Sender: FDA-Public Use
  Company Number: KAD201302-000208

PATIENT
  Age: 53 Year
  Sex: Female
  Weight: 114.3 kg

DRUGS (3)
  1. RIBASPHERE [Suspect]
     Indication: HEPATITIS C
     Dosage: (400 MG IN MORNING AND 400 MG IN EVENING), ORAL
     Route: 048
     Dates: start: 20130131
  2. PEGASYS (PEGINTERFERON ALFA-2A) [Suspect]
     Indication: HEPATITIS C
     Route: 058
     Dates: start: 20121005
  3. INCIVEK [Suspect]

REACTIONS (3)
  - Diabetic neuropathy [None]
  - White blood cell count decreased [None]
  - Anaemia [None]
